FAERS Safety Report 15210903 (Version 1)
Quarter: 2018Q3

REPORT INFORMATION
  Report Type: Spontaneous
  Country: US (occurrence: US)
  Receive Date: 20180629
  Receipt Date: 20180629
  Transmission Date: 20181010
  Serious: Yes (Other)
  Sender: FDA-Public Use
  Company Number: None

PATIENT
  Age: 74 Year
  Sex: Male
  Weight: 108 kg

DRUGS (10)
  1. CAPECITABINE. [Suspect]
     Active Substance: CAPECITABINE
     Indication: COLON CANCER
     Route: 048
     Dates: start: 20180604, end: 20180628
  2. AMARYL [Concomitant]
     Active Substance: GLIMEPIRIDE
  3. MIDAZOLAM [Concomitant]
     Active Substance: MIDAZOLAM HYDROCHLORIDE
  4. PROCHLORPERAZINE. [Concomitant]
     Active Substance: PROCHLORPERAZINE
  5. FENTANYL. [Concomitant]
     Active Substance: FENTANYL
  6. IMODIUM [Concomitant]
     Active Substance: LOPERAMIDE HYDROCHLORIDE
  7. LIDOCAINE. [Concomitant]
     Active Substance: LIDOCAINE
  8. SODIUM CHLORIDE. [Concomitant]
     Active Substance: SODIUM CHLORIDE
  9. IOPAMIDOL [Concomitant]
     Active Substance: IOPAMIDOL
  10. TYLENOL [Concomitant]
     Active Substance: ACETAMINOPHEN

REACTIONS (1)
  - Diarrhoea [None]
